FAERS Safety Report 9209486 (Version 1)
Quarter: 2013Q1

REPORT INFORMATION
  Report Type: Spontaneous
  Country: US (occurrence: None)
  Receive Date: 20120820
  Receipt Date: 20120820
  Transmission Date: 20140127
  Serious: No
  Sender: FDA-Public Use
  Company Number: 1000031375

PATIENT
  Age: 66 Year
  Sex: Male

DRUGS (11)
  1. VIIBRYD [Suspect]
     Route: 048
     Dates: start: 20120503, end: 20120506
  2. VIIBRYD [Suspect]
     Route: 048
     Dates: start: 20120503, end: 20120506
  3. DOXEPIN (DOXEPIN) (DOXEPIN) [Concomitant]
  4. GEMFIBROZIL (GEMFIBROZIL) (GEMFIBROZIL) [Concomitant]
  5. TAMSULOSIN (TAMSULOSIN) (TAMSULOSIN) [Concomitant]
  6. BISACODYL (BISACODYL) (BISACODYL) [Concomitant]
  7. SIMVASTATIN (SIMVASTATIN) (SIMVASTATIN) [Concomitant]
  8. NEXIUM (ESOMEPRAZOLE) (ESOMEPRAZOLE) [Concomitant]
  9. RESTORIL (TEMAZEPAM) (TEMAZEPAM) [Concomitant]
  10. ROPINIROLE (ROPINIROLE) (ROPINIROLE) [Concomitant]
  11. ASPIRIN (ACETYLSALICYLIC ACID) (ACETYLSALICYLIC ACID ) [Concomitant]

REACTIONS (2)
  - Diarrhoea [None]
  - Overdose [None]
